FAERS Safety Report 4544943-7 (Version None)
Quarter: 2005Q1

REPORT INFORMATION
  Report Type: 
  Country: None (occurrence: None)
  Receive Date: 20050104
  Receipt Date: 20041227
  Transmission Date: 20050727
  Serious: Yes (Death, Hospitalization, Other)
  Sender: FDA-Public Use
  Company Number: US-2004-034714

PATIENT
  Age: 59 Year
  Sex: Female

DRUGS (8)
  1. CAMPATH [Suspect]
     Indication: NON-HODGKIN'S LYMPHOMA
     Dosage: 45 MG, 1X/WEEK, INTRAVENOUS
     Route: 042
     Dates: start: 20040920, end: 20041004
  2. CIDOFOVIR (CIDOFOVIR) [Suspect]
     Dates: start: 20041019
  3. BACTRIM [Concomitant]
  4. FAMVIR (PENCICLOVIR) [Concomitant]
  5. ALLOPURINOL [Concomitant]
  6. WARFARIN (WARFARIN) [Concomitant]
  7. OMEPRAZOLE [Concomitant]
  8. SERTRALINE (SERTRALINE) [Concomitant]

REACTIONS (25)
  - ANOREXIA [None]
  - ASTHENIA [None]
  - BONE MARROW DEPRESSION [None]
  - COMA [None]
  - CYTOMEGALOVIRUS VIRAEMIA [None]
  - FAECAL INCONTINENCE [None]
  - HAEMOGLOBIN DECREASED [None]
  - HEPATIC FAILURE [None]
  - HEPATITIS [None]
  - HERPES SIMPLEX [None]
  - LEUKOPENIA [None]
  - MALIGNANT NEOPLASM PROGRESSION [None]
  - NODULE [None]
  - NON-HODGKIN'S LYMPHOMA [None]
  - PLEURAL EFFUSION [None]
  - RESPIRATORY DISORDER [None]
  - SPLENIC LESION [None]
  - SPLENOMEGALY [None]
  - STAPHYLOCOCCAL SEPSIS [None]
  - STREPTOCOCCAL SEPSIS [None]
  - SYSTEMIC MYCOSIS [None]
  - TACHYCARDIA [None]
  - THROMBOCYTOPENIA [None]
  - URINE ODOUR ABNORMAL [None]
  - VAGINAL LACERATION [None]
